FAERS Safety Report 11342543 (Version 1)
Quarter: 2015Q3

REPORT INFORMATION
  Report Type: Spontaneous
  Country: US (occurrence: US)
  Receive Date: 20150805
  Receipt Date: 20150805
  Transmission Date: 20151125
  Serious: No
  Sender: FDA-Public Use
  Company Number: US-TEVA-582974USA

PATIENT
  Sex: Male

DRUGS (2)
  1. PROVIGIL [Suspect]
     Active Substance: MODAFINIL
     Route: 065
  2. MODAFINIL. [Suspect]
     Active Substance: MODAFINIL
     Route: 065

REACTIONS (2)
  - Headache [Recovered/Resolved]
  - Dyspnoea [Not Recovered/Not Resolved]
